FAERS Safety Report 14151709 (Version 1)
Quarter: 2017Q4

REPORT INFORMATION
  Report Type: Spontaneous
  Country: GB (occurrence: GB)
  Receive Date: 20171102
  Receipt Date: 20171102
  Transmission Date: 20180321
  Serious: Yes (Hospitalization)
  Sender: FDA-Public Use
  Company Number: GB-CONCORDIA PHARMACEUTICALS INC.-GSH201710-005982

PATIENT
  Age: 72 Year
  Sex: Male

DRUGS (6)
  1. DIGOXIN. [Suspect]
     Active Substance: DIGOXIN
     Indication: ATRIAL FIBRILLATION
     Dosage: EVERY MORNING
     Route: 048
     Dates: end: 20171012
  2. WARFARIN [Concomitant]
     Active Substance: WARFARIN
  3. LISINOPRIL. [Concomitant]
     Active Substance: LISINOPRIL
  4. BISOPROLOL [Suspect]
     Active Substance: BISOPROLOL
     Indication: ATRIAL FIBRILLATION
     Dosage: EVERY MORNING
     Route: 048
     Dates: end: 20171012
  5. SIMVASTATIN. [Concomitant]
     Active Substance: SIMVASTATIN
  6. TAMSULOSIN HYDROCHLORIDE. [Concomitant]
     Active Substance: TAMSULOSIN HYDROCHLORIDE

REACTIONS (1)
  - Syncope [Recovering/Resolving]
